FAERS Safety Report 7017131-2 (Version None)
Quarter: 2010Q3

REPORT INFORMATION
  Report Type: 
  Country: None (occurrence: None)
  Receive Date: 20100928
  Receipt Date: 20100920
  Transmission Date: 20110219
  Serious: No
  Sender: FDA-Public Use
  Company Number: US-BIOGENIDEC-2010BI015779

PATIENT
  Age: 74 Year
  Sex: Female

DRUGS (2)
  1. TYSABRI [Suspect]
     Indication: MULTIPLE SCLEROSIS
     Route: 042
     Dates: start: 20100310
  2. COPAXONE [Concomitant]
     Indication: MULTIPLE SCLEROSIS
     Dates: start: 20050601, end: 20100205

REACTIONS (16)
  - ABDOMINAL DISCOMFORT [None]
  - BALANCE DISORDER [None]
  - CONSTIPATION [None]
  - DEAFNESS UNILATERAL [None]
  - DEPRESSION [None]
  - DIPLOPIA [None]
  - DISTURBANCE IN ATTENTION [None]
  - DRUG INEFFECTIVE [None]
  - FALL [None]
  - GAIT DISTURBANCE [None]
  - MEMORY IMPAIRMENT [None]
  - NAUSEA [None]
  - THINKING ABNORMAL [None]
  - VISUAL IMPAIRMENT [None]
  - WEIGHT DECREASED [None]
  - WOUND [None]
